FAERS Safety Report 5697924-4 (Version None)
Quarter: 2008Q2

REPORT INFORMATION
  Report Type: 
  Country: None (occurrence: None)
  Receive Date: 20080404
  Receipt Date: 20080404
  Transmission Date: 20081010
  Serious: No
  Sender: FDA-Public Use
  Company Number: None

PATIENT
  Sex: Male
  Weight: 70.3075 kg

DRUGS (1)
  1. VIAGRA [Suspect]
     Indication: ERECTILE DYSFUNCTION
     Dosage: 100MG AS NEEDED  PO
     Route: 048
     Dates: start: 20071107, end: 20071201

REACTIONS (2)
  - SUDDEN HEARING LOSS [None]
  - TINNITUS [None]
